FAERS Safety Report 7383487-4 (Version None)
Quarter: 2011Q1

REPORT INFORMATION
  Report Type: 
  Country: None (occurrence: None)
  Receive Date: 20110330
  Receipt Date: 20110321
  Transmission Date: 20110831
  Serious: Yes (Hospitalization)
  Sender: FDA-Public Use
  Company Number: AU-ELI_LILLY_AND_COMPANY-AU201103006016

PATIENT
  Sex: Male
  Weight: 3.2 kg

DRUGS (4)
  1. EFFEXOR [Concomitant]
     Dosage: UNK
     Route: 064
     Dates: start: 20040101
  2. EFFEXOR [Concomitant]
     Dosage: UNK
     Route: 064
     Dates: start: 20040101
  3. ZYPREXA [Suspect]
     Dosage: UNK
     Route: 064
  4. ZYPREXA [Suspect]
     Dosage: UNK
     Route: 064

REACTIONS (4)
  - FEELING JITTERY [None]
  - DRUG EXPOSURE DURING PREGNANCY [None]
  - CONVULSION NEONATAL [None]
  - OPISTHOTONUS [None]
